FAERS Safety Report 16103012 (Version 1)
Quarter: 2019Q1

REPORT INFORMATION
  Report Type: Spontaneous
  Country: US (occurrence: US)
  Receive Date: 20190321
  Receipt Date: 20190321
  Transmission Date: 20190418
  Serious: No
  Sender: FDA-Public Use
  Company Number: US-BRISTOL-MYERS SQUIBB COMPANY-BMS-2019-028257

PATIENT
  Sex: Male

DRUGS (1)
  1. ELIQUIS [Suspect]
     Active Substance: APIXABAN
     Indication: PRODUCT USED FOR UNKNOWN INDICATION
     Dosage: 5 MILLIGRAM (TAKE HALF A TABLET TWICE DAILY)
     Route: 048

REACTIONS (5)
  - Wrong technique in product usage process [Unknown]
  - Cough [Unknown]
  - Dysstasia [Unknown]
  - Nasopharyngitis [Unknown]
  - Pain [Unknown]
